FAERS Safety Report 5749881-X (Version None)
Quarter: 2008Q2

REPORT INFORMATION
  Report Type: 
  Country: None (occurrence: None)
  Receive Date: 20080520
  Receipt Date: 20070503
  Transmission Date: 20081010
  Serious: No
  Sender: FDA-Public Use
  Company Number: 07H-163-0312555-00

PATIENT
  Age: 67 Year
  Sex: Male

DRUGS (1)
  1. HEPARIN IN DEXTROSE SOLUTION [Suspect]
     Indication: THROMBOSIS PROPHYLAXIS
     Dosage: 22.5CC/HR, CONTINUOUS, INTRAVENOUS
     Route: 042
     Dates: start: 20070502

REACTIONS (4)
  - ACTIVATED PARTIAL THROMBOPLASTIN TIME PROLONGED [None]
  - INCORRECT DRUG ADMINISTRATION RATE [None]
  - MEDICATION ERROR [None]
  - OVERDOSE [None]
